FAERS Safety Report 20803701 (Version 1)
Quarter: 2022Q2

REPORT INFORMATION
  Report Type: Spontaneous
  Country: BR (occurrence: BR)
  Receive Date: 20220509
  Receipt Date: 20220509
  Transmission Date: 20220721
  Serious: Yes (Other)
  Sender: FDA-Public Use
  Company Number: BR-BAYER-2022A060184

PATIENT
  Age: 36 Year
  Sex: Female

DRUGS (4)
  1. DIENOGEST\ESTRADIOL VALERATE [Suspect]
     Active Substance: DIENOGEST\ESTRADIOL VALERATE
     Indication: Incontinence
     Dosage: 1 DF, QD (WITHOUT A BREAK INTERVAL)
     Dates: start: 20220411, end: 202204
  2. CLENIL [BECLOMETASONE DIPROPIONATE] [Concomitant]
     Indication: Rhinitis allergic
     Dosage: USE ONCE A WEEK OR EVERY 15 DAYS
  3. OMEGA-3 FATTY ACIDS [Concomitant]
     Active Substance: OMEGA-3 FATTY ACIDS
     Indication: Weight increased
     Dosage: 1 DF, QD
     Dates: start: 20220424
  4. COPPER [Concomitant]
     Active Substance: COPPER
     Indication: Contraception
     Dosage: BEEN USING FOR ALMOST 7 YEARS
     Route: 015

REACTIONS (12)
  - Immunodeficiency [Not Recovered/Not Resolved]
  - Genital haemorrhage [Not Recovered/Not Resolved]
  - Product use issue [None]
  - Abdominal pain lower [Not Recovered/Not Resolved]
  - Off label use [None]
  - Uterine leiomyoma [Not Recovered/Not Resolved]
  - Dizziness [None]
  - Headache [None]
  - Swelling [None]
  - Back pain [None]
  - Arthralgia [None]
  - Mood altered [None]

NARRATIVE: CASE EVENT DATE: 20220101
